FAERS Safety Report 5474621-1 (Version None)
Quarter: 2007Q3

REPORT INFORMATION
  Report Type: 
  Country: None (occurrence: None)
  Receive Date: 20070831
  Receipt Date: 20070426
  Transmission Date: 20080115
  Serious: No
  Sender: FDA-Public Use
  Company Number: 240679

PATIENT
  Age: 88 Year
  Sex: Female

DRUGS (10)
  1. LUCENTIS [Suspect]
     Indication: DRUG USE FOR UNKNOWN INDICATION
     Dates: start: 20070322
  2. ASPIRIN [Concomitant]
  3. ARICEPT [Concomitant]
  4. POTASSIUM CHLORIDE [Concomitant]
  5. SIMVASTATIN [Concomitant]
  6. VIACTIV (CALCIUM CARBONATE, CHOLECALCIFEROL, PHYTONDADIONE) [Concomitant]
  7. OCUVITE (ASCORBIC ACID, BETA CAROTENE, COPPER NOS, LUTEIN, SLENIUM NOS [Concomitant]
  8. PREDNISOLONE ACETATE EYE DROPS (PREDNISOLONE ACETATE) [Concomitant]
  9. ATROPINE EYE DROPS (ATROPINE SULFATE) [Concomitant]
  10. PAXIL [Concomitant]

REACTIONS (1)
  - VISION BLURRED [None]
